FAERS Safety Report 6059257-6 (Version None)
Quarter: 2009Q1

REPORT INFORMATION
  Report Type: 
  Country: None (occurrence: None)
  Receive Date: 20090128
  Receipt Date: 20090128
  Transmission Date: 20090719
  Serious: Yes (Death, Hospitalization)
  Sender: FDA-Public Use
  Company Number: None

PATIENT
  Age: 39 Year
  Sex: Female
  Weight: 73 kg

DRUGS (1)
  1. LITHIUM CARBONATE [Suspect]

REACTIONS (4)
  - ANOXIC ENCEPHALOPATHY [None]
  - CARDIAC ARREST [None]
  - THERAPEUTIC AGENT TOXICITY [None]
  - TREMOR [None]
